FAERS Safety Report 4422185-3 (Version None)
Quarter: 2004Q3

REPORT INFORMATION
  Report Type: 
  Country: None (occurrence: None)
  Receive Date: 20040806
  Receipt Date: 20040726
  Transmission Date: 20050211
  Serious: Yes (Disabling, Other)
  Sender: FDA-Public Use
  Company Number: 2003191485US

PATIENT
  Age: 82 Year
  Sex: Female
  Weight: 72.5755 kg

DRUGS (2)
  1. BEXTRA [Suspect]
     Indication: OSTEOARTHRITIS
     Dosage: 10 MG QD ORAL
     Route: 048
     Dates: start: 20031217
  2. SYNTHROID [Concomitant]

REACTIONS (6)
  - ABASIA [None]
  - ARTHRITIS [None]
  - CONDITION AGGRAVATED [None]
  - DIARRHOEA [None]
  - DYSPHAGIA [None]
  - LYMPHADENOPATHY [None]
